FAERS Safety Report 7921308-9 (Version None)
Quarter: 2011Q4

REPORT INFORMATION
  Report Type: 
  Country: None (occurrence: None)
  Receive Date: 20111117
  Receipt Date: 20111107
  Transmission Date: 20120403
  Serious: Yes (Hospitalization)
  Sender: FDA-Public Use
  Company Number: US-BAYER-2011-028622

PATIENT
  Sex: Female
  Weight: 59.864 kg

DRUGS (2)
  1. YAZ [Suspect]
     Indication: CONTRACEPTION
     Dosage: UNK
     Dates: start: 20070501, end: 20090201
  2. YAZ [Suspect]
     Indication: ACNE

REACTIONS (9)
  - PAIN [None]
  - CHOLECYSTITIS [None]
  - PSYCHOLOGICAL TRAUMA [None]
  - ABDOMINAL PAIN UPPER [None]
  - FEAR [None]
  - INJURY [None]
  - EMOTIONAL DISTRESS [None]
  - ANXIETY [None]
  - CHOLELITHIASIS [None]
